FAERS Safety Report 16943865 (Version 1)
Quarter: 2019Q4

REPORT INFORMATION
  Report Type: Spontaneous
  Country: GB (occurrence: GB)
  Receive Date: 20191022
  Receipt Date: 20191022
  Transmission Date: 20200122
  Serious: Yes (Disabling)
  Sender: FDA-Public Use
  Company Number: GB-TEVA-2019-GB-1124424

PATIENT
  Age: 35 Year
  Sex: Male
  Weight: 104 kg

DRUGS (1)
  1. HALOPERIDOL. [Suspect]
     Active Substance: HALOPERIDOL
     Dosage: 5MG
     Route: 048

REACTIONS (1)
  - Swollen tongue [Recovered/Resolved]
